FAERS Safety Report 9697079 (Version 1)
Quarter: 2013Q4

REPORT INFORMATION
  Report Type: Spontaneous
  Country: IN (occurrence: IN)
  Receive Date: 20131120
  Receipt Date: 20131120
  Transmission Date: 20140711
  Serious: Yes (Death, Other)
  Sender: FDA-Public Use
  Company Number: IN-009507513-1311IND007611

PATIENT
  Age: 54 Year
  Sex: Male

DRUGS (2)
  1. VIRAFERONPEG [Suspect]
     Dosage: 100 MICROGRAM, QW
     Route: 048
  2. REBETOL [Suspect]
     Route: 048

REACTIONS (2)
  - Multi-organ failure [Fatal]
  - Haemoglobin decreased [Unknown]
